FAERS Safety Report 5191320-4 (Version None)
Quarter: 2006Q4

REPORT INFORMATION
  Report Type: 
  Country: None (occurrence: None)
  Receive Date: 20061226
  Receipt Date: 20061031
  Transmission Date: 20070319
  Serious: Yes (Other)
  Sender: FDA-Public Use
  Company Number: 2006AP05240

PATIENT
  Age: 30 Year
  Sex: Male

DRUGS (1)
  1. PULMICORT [Suspect]
     Indication: PNEUMONIA
     Route: 055
     Dates: start: 20061020, end: 20061023

REACTIONS (1)
  - WHITE BLOOD CELL COUNT INCREASED [None]
